FAERS Safety Report 14576311 (Version 2)
Quarter: 2019Q1

REPORT INFORMATION
  Report Type: Report from Study
  Country: None (occurrence: BR)
  Receive Date: 20180227
  Receipt Date: 20190321
  Transmission Date: 20190417
  Serious: Yes (Other)
  Sender: FDA-Public Use
  Company Number: BR-ABBVIE-17K-020-2054271-00

PATIENT
  Age: 67 Year
  Sex: Female
  Weight: 56 kg

DRUGS (12)
  1. HYDROLYZED COLLAGEN [Concomitant]
     Indication: PROPHYLAXIS
     Route: 048
     Dates: start: 20170610
  2. ASTRO [Concomitant]
     Indication: PRODUCT USED FOR UNKNOWN INDICATION
     Route: 048
     Dates: start: 20170712, end: 20170718
  3. HUMIRA [Suspect]
     Active Substance: ADALIMUMAB
     Indication: RHEUMATOID ARTHRITIS
     Route: 058
     Dates: start: 20160509
  4. IBUPROFEN. [Suspect]
     Active Substance: IBUPROFEN
     Indication: ARTHRALGIA
     Route: 048
     Dates: start: 2014, end: 201701
  5. METICORTEN [Concomitant]
     Active Substance: PREDNISONE
     Indication: ARTHRITIS
     Route: 048
     Dates: start: 1997
  6. OMEGA 3 [Concomitant]
     Active Substance: OMEGA-3 FATTY ACIDS
     Indication: PRODUCT USED FOR UNKNOWN INDICATION
     Route: 048
     Dates: start: 2014
  7. CORTICORTEN [Concomitant]
     Active Substance: PREDNISONE
     Indication: RHEUMATOID ARTHRITIS
  8. NOVALGINA [Concomitant]
     Active Substance: METAMIZOLE SODIUM
     Indication: ARTHRALGIA
     Route: 048
     Dates: start: 201701
  9. CHLOROQUINE. [Concomitant]
     Active Substance: CHLOROQUINE
     Indication: RHEUMATOID ARTHRITIS
     Route: 048
     Dates: start: 1997, end: 2002
  10. NUTRICALCIO [Concomitant]
     Indication: PROPHYLAXIS
     Route: 048
     Dates: start: 20170610
  11. RANITIDINE. [Concomitant]
     Active Substance: RANITIDINE
     Indication: PROPHYLAXIS AGAINST GASTROINTESTINAL ULCER
     Route: 048
     Dates: start: 1999
  12. LOSARTAN. [Concomitant]
     Active Substance: LOSARTAN
     Indication: HYPERTENSION

REACTIONS (11)
  - Renal failure [Unknown]
  - Renal disorder [Unknown]
  - Catarrh [Unknown]
  - Vomiting [Unknown]
  - Pneumonia [Not Recovered/Not Resolved]
  - Chest X-ray abnormal [Unknown]
  - Pruritus [Unknown]
  - Urinary tract infection [Unknown]
  - Cataract [Unknown]
  - Coagulopathy [Unknown]
  - Blood viscosity decreased [Unknown]

NARRATIVE: CASE EVENT DATE: 201701
